FAERS Safety Report 10006841 (Version 1)
Quarter: 2014Q1

REPORT INFORMATION
  Report Type: Spontaneous
  Country: US (occurrence: US)
  Receive Date: 20140313
  Receipt Date: 20140313
  Transmission Date: 20141002
  Serious: No
  Sender: FDA-Public Use
  Company Number: US-SHIRE-US201400093

PATIENT
  Sex: 0

DRUGS (4)
  1. VYVANSE [Suspect]
     Indication: ATTENTION DEFICIT/HYPERACTIVITY DISORDER
     Dosage: 20 MG, AS REQ^D
     Route: 048
     Dates: start: 2013
  2. VYVANSE [Suspect]
     Dosage: 20 MG, 1X/DAY:QD
     Route: 048
     Dates: start: 2008, end: 2013
  3. ORTHO TRI-CYCLEN LO [Concomitant]
     Indication: PREMENSTRUAL SYNDROME
     Dosage: UNK
     Dates: end: 201312
  4. TRI-SPRINTEC [Concomitant]
     Indication: PREMENSTRUAL SYNDROME
     Dosage: UNK, UNKNOWN
     Route: 065
     Dates: start: 201312

REACTIONS (2)
  - Inappropriate schedule of drug administration [Not Recovered/Not Resolved]
  - No adverse event [Not Recovered/Not Resolved]
